FAERS Safety Report 7288283-4 (Version None)
Quarter: 2011Q1

REPORT INFORMATION
  Report Type: 
  Country: None (occurrence: None)
  Receive Date: 20110211
  Receipt Date: 20110131
  Transmission Date: 20110831
  Serious: Yes (Hospitalization)
  Sender: FDA-Public Use
  Company Number: US-ROCHE-757053

PATIENT
  Sex: Female

DRUGS (26)
  1. BEVACIZUMAB [Suspect]
     Indication: NON-SMALL CELL LUNG CANCER
     Dosage: LAST DOSE PRIOR TO SAE: 29 DECEMBER 2010.
     Route: 042
     Dates: start: 20090910, end: 20110116
  2. CARBOPLATIN [Suspect]
     Indication: NON-SMALL CELL LUNG CANCER
     Dosage: DOSE: 6 AUC
     Route: 042
     Dates: start: 20090911, end: 20091112
  3. ZETIA [Concomitant]
  4. GLIMEPIRIDE [Concomitant]
  5. ZOLPIDEM TARTRATE [Concomitant]
  6. METFORMIN HYDROCHLORIDE [Concomitant]
  7. NEOMYCIN AND POLYMYXIN B SULFATE [Concomitant]
     Dosage: REPORTED AS: NEOMYCIN W/POLYMYXIN
  8. NASONEX [Concomitant]
  9. PACLITAXEL [Suspect]
     Indication: NON-SMALL CELL LUNG CANCER
     Route: 042
     Dates: start: 20090911, end: 20091112
  10. GABAPENTIN [Concomitant]
  11. ACETAMINOPHEN [Concomitant]
     Dosage: DRUG REPORTED: HYDROCODONE BITARTARATE AND ACETAMINOPHEN.
  12. LEXAPRO [Concomitant]
  13. LANTUS [Concomitant]
  14. RECLAST [Concomitant]
  15. AZITHROMYCIN [Concomitant]
  16. ACTOS [Concomitant]
  17. HYDROCORTISONE [Concomitant]
  18. PROMETHAZINE [Concomitant]
  19. PREDNISONE [Concomitant]
  20. LOTREL [Concomitant]
  21. LIPITOR [Concomitant]
  22. CELEBREX [Concomitant]
  23. HUMALOG [Concomitant]
  24. FOLIC ACID [Concomitant]
  25. OMEPRAZOLE [Concomitant]
  26. EVISTA [Concomitant]

REACTIONS (2)
  - DIVERTICULITIS [None]
  - LARGE INTESTINE PERFORATION [None]
